FAERS Safety Report 9493654 (Version 1)
Quarter: 2013Q3

REPORT INFORMATION
  Report Type: Spontaneous
  Country: US (occurrence: US)
  Receive Date: 20130902
  Receipt Date: 20130902
  Transmission Date: 20140515
  Serious: Yes (Other)
  Sender: FDA-Public Use
  Company Number: US-ROCHE-1268034

PATIENT
  Sex: 0

DRUGS (1)
  1. KADCYLA [Suspect]
     Indication: BREAST CANCER METASTATIC
     Route: 065

REACTIONS (5)
  - Soft tissue injury [Unknown]
  - Catheter site pain [Unknown]
  - Skin exfoliation [Unknown]
  - Wound [Unknown]
  - Extravasation [Unknown]
